FAERS Safety Report 15148666 (Version 1)
Quarter: 2018Q3

REPORT INFORMATION
  Report Type: Spontaneous
  Country: FR (occurrence: FR)
  Receive Date: 20180716
  Receipt Date: 20180716
  Transmission Date: 20181010
  Serious: Yes (Other)
  Sender: FDA-Public Use
  Company Number: FR-CORDEN PHARMA LATINA S.P.A.-FR-2018COR000064

PATIENT

DRUGS (6)
  1. ETOPOSIDE. [Suspect]
     Active Substance: ETOPOSIDE
     Indication: CASTLEMAN^S DISEASE
     Dosage: 100 MG/M2, UNK
     Route: 042
  2. ETOPOSIDE. [Suspect]
     Active Substance: ETOPOSIDE
     Indication: THROMBOTIC MICROANGIOPATHY
  3. RITUXIMAB. [Suspect]
     Active Substance: RITUXIMAB
     Indication: CASTLEMAN^S DISEASE
     Dosage: 375 MG/M2/WEEK X 4
     Route: 065
  4. RITUXIMAB. [Suspect]
     Active Substance: RITUXIMAB
     Indication: THROMBOTIC MICROANGIOPATHY
  5. METHYLPREDNISOLONE. [Suspect]
     Active Substance: METHYLPREDNISOLONE
     Indication: THROMBOTIC MICROANGIOPATHY
     Dosage: 1 MG/KG, QD
     Route: 048
  6. METHYLPREDNISOLONE. [Suspect]
     Active Substance: METHYLPREDNISOLONE
     Indication: CASTLEMAN^S DISEASE
     Dosage: ONE BOLUS 1 G/1.73M^2
     Route: 042

REACTIONS (1)
  - Posterior reversible encephalopathy syndrome [Recovered/Resolved]
